FAERS Safety Report 9667689 (Version 1)
Quarter: 2013Q4

REPORT INFORMATION
  Report Type: Spontaneous
  Country: US (occurrence: US)
  Receive Date: 20131101
  Receipt Date: 20131101
  Transmission Date: 20140711
  Serious: No
  Sender: FDA-Public Use
  Company Number: US-ORACLE-2012S1000038

PATIENT
  Age: 30 Year
  Sex: Male

DRUGS (25)
  1. KRYSTEXXA INJECTION [Suspect]
     Indication: GOUT
     Route: 042
     Dates: start: 20120228, end: 20120228
  2. KRYSTEXXA INJECTION [Suspect]
     Indication: GOUT
     Route: 042
     Dates: start: 20120313, end: 20120313
  3. KRYSTEXXA INJECTION [Suspect]
     Indication: GOUT
     Route: 042
     Dates: start: 20120327, end: 20120327
  4. KRYSTEXXA INJECTION [Suspect]
     Indication: GOUT
     Route: 042
     Dates: start: 20120410, end: 20120410
  5. KRYSTEXXA INJECTION [Suspect]
     Indication: GOUT
     Route: 042
     Dates: start: 20120424, end: 20120424
  6. BENADRYL /01563701/ [Concomitant]
     Indication: PREMEDICATION
     Dates: start: 20120228, end: 20120228
  7. BENADRYL /01563701/ [Concomitant]
     Indication: PREMEDICATION
     Dates: start: 20120313, end: 20120313
  8. BENADRYL /01563701/ [Concomitant]
     Indication: PREMEDICATION
     Dates: start: 20120327, end: 20120327
  9. BENADRYL /01563701/ [Concomitant]
     Indication: PREMEDICATION
     Dates: start: 20120410, end: 20120410
  10. BENADRYL /01563701/ [Concomitant]
     Indication: PREMEDICATION
     Dates: start: 20120424, end: 20120424
  11. TYLENOL /00020001/ [Concomitant]
     Indication: PREMEDICATION
     Dates: start: 20120228, end: 20120228
  12. TYLENOL /00020001/ [Concomitant]
     Indication: PREMEDICATION
     Dates: start: 20120313, end: 20120313
  13. TYLENOL /00020001/ [Concomitant]
     Indication: PREMEDICATION
     Dates: start: 20120327, end: 20120327
  14. TYLENOL /00020001/ [Concomitant]
     Indication: PREMEDICATION
     Dates: start: 20120410, end: 20120410
  15. TYLENOL /00020001/ [Concomitant]
     Indication: PREMEDICATION
     Dates: start: 20120424, end: 20120424
  16. SOLU-MEDROL [Concomitant]
     Indication: PREMEDICATION
     Route: 042
     Dates: start: 20120228, end: 20120228
  17. SOLU-MEDROL [Concomitant]
     Indication: PREMEDICATION
     Route: 042
     Dates: start: 20120313, end: 20120313
  18. SOLU-MEDROL [Concomitant]
     Indication: PREMEDICATION
     Route: 042
     Dates: start: 20120327, end: 20120327
  19. SOLU-MEDROL [Concomitant]
     Indication: PREMEDICATION
     Route: 042
     Dates: start: 20120410, end: 20120410
  20. SOLU-MEDROL [Concomitant]
     Indication: PREMEDICATION
     Route: 042
     Dates: start: 20120424, end: 20120424
  21. PREDNISONE [Concomitant]
     Indication: PRODUCT USED FOR UNKNOWN INDICATION
  22. NORVASC [Concomitant]
     Indication: PRODUCT USED FOR UNKNOWN INDICATION
  23. COREG [Concomitant]
     Indication: PRODUCT USED FOR UNKNOWN INDICATION
  24. LISINOPRIL [Concomitant]
     Indication: PRODUCT USED FOR UNKNOWN INDICATION
  25. LASIX /00032601/ [Concomitant]
     Indication: PRODUCT USED FOR UNKNOWN INDICATION

REACTIONS (2)
  - Neuropathy peripheral [Recovered/Resolved]
  - Therapeutic response decreased [Recovered/Resolved]
